FAERS Safety Report 4957530-3 (Version None)
Quarter: 2006Q1

REPORT INFORMATION
  Report Type: 
  Country: None (occurrence: None)
  Receive Date: 20060330
  Receipt Date: 20060111
  Transmission Date: 20060701
  Serious: No
  Sender: FDA-Public Use
  Company Number: US-GLAXOSMITHKLINE-A0588794A

PATIENT
  Age: 54 Year
  Sex: Male

DRUGS (5)
  1. FLOVENT [Suspect]
     Dosage: 2PUFF TWICE PER DAY
     Route: 055
     Dates: start: 20060108, end: 20060109
  2. VENTOLIN [Suspect]
     Indication: BRONCHOSPASM
     Route: 055
     Dates: start: 20030101
  3. SEREVENT [Suspect]
     Indication: DRUG USE FOR UNKNOWN INDICATION
     Route: 055
  4. AZMACORT [Concomitant]
  5. PREDNISONE [Concomitant]

REACTIONS (4)
  - BRONCHOSPASM [None]
  - CHEST DISCOMFORT [None]
  - DRUG INEFFECTIVE [None]
  - STOMACH DISCOMFORT [None]
